FAERS Safety Report 4533027-X (Version None)
Quarter: 2004Q4

REPORT INFORMATION
  Report Type: 
  Country: None (occurrence: None)
  Receive Date: 20041206
  Receipt Date: 20041014
  Transmission Date: 20050328
  Serious: No
  Sender: FDA-Public Use
  Company Number: USA041081152

PATIENT
  Age: 74 Year
  Sex: Female

DRUGS (5)
  1. CYMBALTA [Suspect]
     Indication: FACIAL PAIN
     Dosage: 30 MG/1 DAY
     Dates: start: 20041014
  2. ROBAXIN [Concomitant]
  3. TRAZODONE HCL [Concomitant]
  4. LORAZEPAM [Concomitant]
  5. HYOSCYAMINE [Concomitant]

REACTIONS (2)
  - BUTTOCK PAIN [None]
  - IRRITABLE BOWEL SYNDROME [None]
